FAERS Safety Report 7301712-2 (Version None)
Quarter: 2011Q1

REPORT INFORMATION
  Report Type: 
  Country: None (occurrence: None)
  Receive Date: 20110208
  Receipt Date: 20110127
  Transmission Date: 20110831
  Serious: Yes (Other)
  Sender: FDA-Public Use
  Company Number: 026383

PATIENT
  Sex: Female

DRUGS (1)
  1. LACOSAMIDE [Suspect]
     Indication: NEURALGIA
     Dosage: (200 MG BID ORAL)
     Route: 048

REACTIONS (2)
  - WEIGHT DECREASED [None]
  - ABDOMINAL TENDERNESS [None]
